FAERS Safety Report 9329471 (Version 1)
Quarter: 2013Q2

REPORT INFORMATION
  Report Type: Spontaneous
  Country: US (occurrence: US)
  Receive Date: 20130604
  Receipt Date: 20130604
  Transmission Date: 20140414
  Serious: No
  Sender: FDA-Public Use
  Company Number: US-SANOFI-AVENTIS-2012SA093533

PATIENT
  Sex: Female

DRUGS (3)
  1. SOLOSTAR [Suspect]
  2. LANTUS SOLOSTAR [Suspect]
     Route: 058
  3. HUMALOG [Suspect]
     Route: 065
     Dates: start: 201212

REACTIONS (5)
  - Hyperglycaemia [Recovering/Resolving]
  - Irritable bowel syndrome [Unknown]
  - Vomiting [Unknown]
  - Diarrhoea [Unknown]
  - Dizziness [Unknown]
